FAERS Safety Report 16076791 (Version 1)
Quarter: 2019Q1

REPORT INFORMATION
  Report Type: Spontaneous
  Country: ES (occurrence: ES)
  Receive Date: 20190315
  Receipt Date: 20190315
  Transmission Date: 20190418
  Serious: Yes (Other)
  Sender: FDA-Public Use
  Company Number: ES-EISAI MEDICAL RESEARCH-EC-2019-052836

PATIENT
  Age: 19 Month
  Sex: Male
  Weight: 11 kg

DRUGS (6)
  1. VALPROIC ACID. [Concomitant]
     Active Substance: VALPROIC ACID
     Indication: EPILEPSY
     Route: 065
  2. PERAMPANEL [Suspect]
     Active Substance: PERAMPANEL
     Indication: EPILEPSY
     Dosage: (DOSE AND FREQUENCY UNKNOWN)
     Route: 048
     Dates: start: 20170905, end: 2017
  3. LEVETIRACETAM. [Concomitant]
     Active Substance: LEVETIRACETAM
     Indication: EPILEPSY
     Route: 065
  4. PERAMPANEL [Suspect]
     Active Substance: PERAMPANEL
     Dosage: UP-TITRATION (DOSE AND FREQUENCY UNKNOWN)
     Route: 048
     Dates: start: 2017, end: 2017
  5. CLOBAZAM. [Concomitant]
     Active Substance: CLOBAZAM
     Indication: EPILEPSY
     Route: 065
  6. PERAMPANEL [Suspect]
     Active Substance: PERAMPANEL
     Route: 048
     Dates: start: 2017, end: 201712

REACTIONS (2)
  - Petit mal epilepsy [Recovered/Resolved]
  - Product use issue [Recovered/Resolved]

NARRATIVE: CASE EVENT DATE: 20171222
